FAERS Safety Report 5215639-3 (Version None)
Quarter: 2007Q1

REPORT INFORMATION
  Report Type: 
  Country: None (occurrence: None)
  Receive Date: 20070117
  Receipt Date: 20070102
  Transmission Date: 20070707
  Serious: Yes (Hospitalization)
  Sender: FDA-Public Use
  Company Number: PAR_1215_2007

PATIENT
  Age: 39 Year
  Sex: Male

DRUGS (1)
  1. IBUPROFEN [Suspect]
     Indication: LYMPH NODE PAIN
     Dosage: DF QDAY PO
     Route: 048
     Dates: start: 20061019, end: 20061023

REACTIONS (1)
  - STEVENS-JOHNSON SYNDROME [None]
